FAERS Safety Report 5919293-4 (Version None)
Quarter: 2008Q4

REPORT INFORMATION
  Report Type: 
  Country: None (occurrence: None)
  Receive Date: 20081015
  Receipt Date: 20081006
  Transmission Date: 20090506
  Serious: Yes (Other)
  Sender: FDA-Public Use
  Company Number: PHBS2008FR05925

PATIENT
  Age: 75 Year
  Sex: Male

DRUGS (3)
  1. STALEVO 100 [Suspect]
     Indication: PARKINSON'S DISEASE
     Dosage: 600/300/75 MG/DAY
  2. COMTAN [Suspect]
     Indication: PARKINSON'S DISEASE
  3. CARBIDOPA AND LEVODOPA [Concomitant]
     Indication: PARKINSON'S DISEASE

REACTIONS (7)
  - ADENOMA BENIGN [None]
  - BIOPSY COLON ABNORMAL [None]
  - COLITIS [None]
  - COLONOSCOPY ABNORMAL [None]
  - DIARRHOEA [None]
  - PAIN [None]
  - RECTAL TENESMUS [None]
